FAERS Safety Report 15594986 (Version 4)
Quarter: 2019Q2

REPORT INFORMATION
  Report Type: Report from Study
  Country: JP (occurrence: JP)
  Receive Date: 20181106
  Receipt Date: 20190521
  Transmission Date: 20190711
  Serious: Yes (Hospitalization, Other)
  Sender: FDA-Public Use
  Company Number: JP-AMGEN-JPNCT2018155553

PATIENT
  Age: 83 Year
  Sex: Female

DRUGS (11)
  1. YOKUKANSANKACHIMPIHANGE [ANGELICA ACUTILOBA ROOT;ATRACTYLODES LANCEA R [Concomitant]
     Indication: OSTEOARTHRITIS
     Dosage: 5 GRAM
     Route: 048
     Dates: start: 20150716, end: 20150812
  2. CINACALCET HCL [Suspect]
     Active Substance: CINACALCET HYDROCHLORIDE
     Indication: HYPERCALCAEMIA
     Dosage: 25 MILLIGRAM, TID
     Route: 048
     Dates: start: 20160311
  3. LEXAPRO [Suspect]
     Active Substance: ESCITALOPRAM OXALATE
     Indication: OSTEOARTHRITIS
     Dosage: 5 MILLIGRAM
     Route: 048
     Dates: start: 20150910, end: 20151022
  4. TRAMCET [Concomitant]
     Active Substance: ACETAMINOPHEN\TRAMADOL
     Indication: OSTEOARTHRITIS
     Dosage: 4 DOSAGE FORM
     Route: 048
     Dates: end: 20160325
  5. BONALON [Concomitant]
     Active Substance: ALENDRONATE SODIUM
     Indication: HYPERPARATHYROIDISM PRIMARY
     Dosage: 35 MILLIGRAM
     Route: 048
  6. TOKISHIGYAKUKAGOSHUYUSHOKYOTO [Concomitant]
     Indication: OSTEOARTHRITIS
     Dosage: 5 GRAM
     Route: 048
     Dates: start: 20150514, end: 20150618
  7. SEISHINRENSHIIN [Concomitant]
     Active Substance: HERBALS
     Indication: OSTEOARTHRITIS
     Dosage: 5 GRAM
     Route: 048
     Dates: start: 20150813, end: 20150909
  8. HACHIMIJIOGAN [Concomitant]
     Active Substance: HERBALS
     Indication: OSTEOARTHRITIS
     Dosage: 5 GRAM
     Route: 048
     Dates: end: 20150513
  9. NINJINTO [ATRACTYLODES LANCEA RHIZOME;GLYCYRRHIZA SPP. ROOT;PANAX GINS [Concomitant]
     Indication: OSTEOARTHRITIS
     Dosage: 5 GRAM
     Route: 048
     Dates: end: 20150513
  10. CINACALCET HCL [Suspect]
     Active Substance: CINACALCET HYDROCHLORIDE
     Indication: HYPERPARATHYROIDISM PRIMARY
     Dosage: 25 MILLIGRAM, BID
     Route: 048
     Dates: start: 20150410, end: 20160310
  11. HOCHUEKKITO [ANGELICA ACUTILOBA ROOT;ASTRAGALUS SPP. ROOT;ATRACTYLODES [Concomitant]
     Indication: OSTEOARTHRITIS
     Dosage: 5 GRAM
     Route: 048
     Dates: start: 20150618, end: 20150909

REACTIONS (4)
  - Appendicitis perforated [Recovered/Resolved]
  - Hepatic function abnormal [Recovering/Resolving]
  - Renal impairment [Recovering/Resolving]
  - Dehydration [Recovered/Resolved]

NARRATIVE: CASE EVENT DATE: 20151001
